FAERS Safety Report 26198376 (Version 1)
Quarter: 2025Q4

REPORT INFORMATION
  Report Type: Spontaneous
  Country: US (occurrence: None)
  Receive Date: 20251224
  Receipt Date: 20251224
  Transmission Date: 20260117
  Serious: Yes (Death)
  Sender: FDA-CTU
  Company Number: None

PATIENT
  Sex: Female

DRUGS (1)
  1. BOTOX [Suspect]
     Active Substance: ONABOTULINUMTOXINA
     Indication: Torticollis
     Dosage: OTHER STRENGTH : 100 UNIT;?OTHER QUANTITY : 100 UNITS;?OTHER FREQUENCY : EVERY 12 WEEKS;?OTHER ROUTE : INJECTION ;
     Route: 050
     Dates: start: 20220303

REACTIONS (1)
  - Death [None]
